FAERS Safety Report 8539325-7 (Version None)
Quarter: 2012Q3

REPORT INFORMATION
  Report Type: 
  Country: None (occurrence: None)
  Receive Date: 20120726
  Receipt Date: 20110727
  Transmission Date: 20120928
  Serious: No
  Sender: FDA-Public Use
  Company Number: US-ASTRAZENECA-2011SE45398

PATIENT
  Sex: Male

DRUGS (4)
  1. SEROQUEL XR [Suspect]
     Route: 048
  2. SEROQUEL XR [Suspect]
     Indication: BIPOLAR DISORDER
     Route: 048
  3. SEROQUEL XR [Suspect]
     Route: 048
  4. SEROQUEL XR [Suspect]
     Indication: SCHIZOPHRENIA
     Route: 048

REACTIONS (6)
  - IRRITABILITY [None]
  - INSOMNIA [None]
  - SEDATION [None]
  - SLEEP DISORDER [None]
  - DRUG DOSE OMISSION [None]
  - DRUG INEFFECTIVE FOR UNAPPROVED INDICATION [None]
